FAERS Safety Report 4595068-6 (Version None)
Quarter: 2005Q1

REPORT INFORMATION
  Report Type: 
  Country: None (occurrence: None)
  Receive Date: 20050301
  Receipt Date: 20050118
  Transmission Date: 20050727
  Serious: Yes (Hospitalization)
  Sender: FDA-Public Use
  Company Number: NZ-MERCK-0501NZL00011

PATIENT
  Age: 59 Year
  Sex: Male

DRUGS (5)
  1. ZOCOR [Suspect]
     Indication: BLOOD CHOLESTEROL INCREASED
     Route: 048
     Dates: start: 20020101, end: 20030101
  2. ZOCOR [Suspect]
     Route: 048
     Dates: start: 20030101, end: 20050101
  3. ZOCOR [Suspect]
     Route: 048
     Dates: start: 20050101, end: 20050119
  4. ZOCOR [Suspect]
     Route: 048
     Dates: start: 20050201
  5. ASPIRIN [Concomitant]
     Route: 048

REACTIONS (4)
  - ANGINA PECTORIS [None]
  - MYALGIA [None]
  - OEDEMA PERIPHERAL [None]
  - PAIN [None]
